FAERS Safety Report 25189479 (Version 1)
Quarter: 2025Q2

REPORT INFORMATION
  Report Type: Spontaneous
  Country: FR (occurrence: FR)
  Receive Date: 20250411
  Receipt Date: 20250411
  Transmission Date: 20250716
  Serious: Yes (Other)
  Sender: Vantive US Healthcare
  Company Number: FR-BAXTER-2024BAX011073

PATIENT
  Sex: Male
  Weight: 71 kg

DRUGS (3)
  1. EXTRANEAL [Suspect]
     Active Substance: CALCIUM CHLORIDE\ICODEXTRIN\MAGNESIUM CHLORIDE\SODIUM CHLORIDE\SODIUM LACTATE
     Indication: Peritoneal dialysis
     Route: 033
     Dates: start: 20240111, end: 20240112
  2. EXTRANEAL [Suspect]
     Active Substance: CALCIUM CHLORIDE\ICODEXTRIN\MAGNESIUM CHLORIDE\SODIUM CHLORIDE\SODIUM LACTATE
     Route: 033
  3. CALCIUM CHLORIDE\DEXTROSE\MAGNESIUM CHLORIDE\SODIUM CHLORIDE [Suspect]
     Active Substance: CALCIUM CHLORIDE\DEXTROSE\MAGNESIUM CHLORIDE\SODIUM CHLORIDE
     Route: 033

REACTIONS (7)
  - Peritoneal cloudy effluent [Unknown]
  - Peritonitis bacterial [Recovered/Resolved]
  - Pain [Recovered/Resolved]
  - Peritonitis bacterial [Unknown]
  - Pain [Unknown]
  - Therapy interrupted [Recovered/Resolved]
  - Product distribution issue [Recovered/Resolved]
